FAERS Safety Report 4964391-5 (Version None)
Quarter: 2006Q1

REPORT INFORMATION
  Report Type: 
  Country: None (occurrence: None)
  Receive Date: 20060331
  Receipt Date: 20060317
  Transmission Date: 20060701
  Serious: Yes (Other)
  Sender: FDA-Public Use
  Company Number: CA200603001162

PATIENT
  Age: 25 Year
  Sex: Male
  Weight: 90.7 kg

DRUGS (3)
  1. STRATTERA [Suspect]
     Indication: ATTENTION DEFICIT/HYPERACTIVITY DISORDER
     Dosage: 40 MG, UNK
     Route: 065
     Dates: start: 20060208, end: 20060213
  2. ZYPREXA [Suspect]
     Dosage: 2.5 MG, UNK
     Route: 065
  3. LAMOTRIGINE [Concomitant]

REACTIONS (4)
  - BIPOLAR DISORDER [None]
  - INTENTIONAL SELF-INJURY [None]
  - SUICIDAL IDEATION [None]
  - THERMAL BURN [None]
